FAERS Safety Report 8381203-0 (Version None)
Quarter: 2012Q2

REPORT INFORMATION
  Report Type: 
  Country: None (occurrence: None)
  Receive Date: 20120523
  Receipt Date: 20120511
  Transmission Date: 20120825
  Serious: Yes (Hospitalization)
  Sender: FDA-Public Use
  Company Number: FR-ELI_LILLY_AND_COMPANY-FR201203000440

PATIENT
  Sex: Male
  Weight: 59 kg

DRUGS (16)
  1. RAMIPRIL [Concomitant]
     Dosage: 2.5 MG, BID
  2. DEXERYL                            /00557601/ [Concomitant]
     Dosage: 1 DF, TID
  3. LOVENOX [Concomitant]
     Dosage: 0.4 ML, QD
  4. FORTEO [Suspect]
     Indication: OSTEOPOROSIS
     Dosage: 20 UG, QD
     Route: 058
     Dates: start: 20110405
  5. FLUTICASONE PROPIONATE/SALMETEROL [Concomitant]
     Dosage: 500/50MCG, QD
  6. ACUPAN [Concomitant]
     Dosage: UNK, PRN
  7. MIRTAZAPINE [Concomitant]
     Dosage: 15 MG, QD
  8. PRIMPERAN TAB [Concomitant]
     Dosage: UNK, PRN
  9. KETOCONAZOLE [Concomitant]
     Dosage: 2 DF, TID
  10. ACETAMINOPHEN [Concomitant]
     Dosage: UNK, PRN
  11. NEXIUM [Concomitant]
     Dosage: 20 MG, QD
  12. MOVICOL                            /01625101/ [Concomitant]
     Dosage: 2 BAGS, TID
  13. SPIRIVA [Concomitant]
     Dosage: UNK, QD
  14. NICORETTE                          /01033301/ [Concomitant]
     Dosage: UNK, UNKNOWN
  15. XANAX [Concomitant]
     Dosage: 0.25 MG, TID
  16. VITAMIN D [Concomitant]
     Dosage: ONE BLISTER, EVERY TWO MONTHS

REACTIONS (3)
  - RESPIRATORY FAILURE [None]
  - BRONCHITIS [None]
  - PSEUDOMONAS BRONCHITIS [None]
